FAERS Safety Report 8429326-1 (Version None)
Quarter: 2012Q2

REPORT INFORMATION
  Report Type: 
  Country: None (occurrence: None)
  Receive Date: 20120612
  Receipt Date: 20120528
  Transmission Date: 20120825
  Serious: Yes (Other)
  Sender: FDA-Public Use
  Company Number: DE-UCBSA-041941

PATIENT

DRUGS (4)
  1. VIMPAT [Suspect]
  2. OXCARBAZEPINE [Concomitant]
  3. LAMOTRIGINE [Concomitant]
  4. KEPPRA [Suspect]

REACTIONS (3)
  - GRAND MAL CONVULSION [None]
  - CONVULSION [None]
  - DRUG INEFFECTIVE [None]
